FAERS Safety Report 5780932-2 (Version None)
Quarter: 2008Q2

REPORT INFORMATION
  Report Type: 
  Country: None (occurrence: None)
  Receive Date: 20080618
  Receipt Date: 20080610
  Transmission Date: 20081010
  Serious: Yes (Other)
  Sender: FDA-Public Use
  Company Number: 163-20785-08051507

PATIENT
  Age: 76 Year
  Sex: Female

DRUGS (14)
  1. THALOMID [Suspect]
     Indication: MULTIPLE MYELOMA
     Dosage: 150 MG, 3 IN 1 D, ORAL, 100 MG, 2 IN 1 D, ORAL
     Route: 048
     Dates: start: 20030828, end: 20040201
  2. THALOMID [Suspect]
     Indication: MULTIPLE MYELOMA
     Dosage: 150 MG, 3 IN 1 D, ORAL, 100 MG, 2 IN 1 D, ORAL
     Route: 048
     Dates: start: 20040225, end: 20041001
  3. DECADRON [Concomitant]
  4. AREDIA [Concomitant]
  5. METOPROLOL TARTRATE [Concomitant]
  6. LASIX [Concomitant]
  7. POTASSIUM (POTASSIUM) [Concomitant]
  8. COZAAR [Concomitant]
  9. LEVOXYL [Concomitant]
  10. LIPITOR [Concomitant]
  11. NORVASC [Concomitant]
  12. ASPIRIN [Concomitant]
  13. CALCIUM (CALCIUM) [Concomitant]
  14. MULTI-VITAMINS [Concomitant]

REACTIONS (5)
  - BLOOD CREATININE INCREASED [None]
  - CONFUSIONAL STATE [None]
  - HALLUCINATION [None]
  - LETHARGY [None]
  - OEDEMA [None]
